FAERS Safety Report 8511716 (Version 2)
Quarter: 2015Q1

REPORT INFORMATION
  Report Type: Spontaneous
  Country: US (occurrence: US)
  Receive Date: 20120413
  Receipt Date: 20150102
  Transmission Date: 20150721
  Serious: No
  Sender: FDA-Public Use
  Company Number: US-ASTRAZENECA-2011SE42457

PATIENT
  Age: 80 Year
  Sex: Male

DRUGS (1)
  1. NEXIUM [Suspect]
     Active Substance: ESOMEPRAZOLE MAGNESIUM
     Route: 048

REACTIONS (4)
  - Pain [Unknown]
  - Drug dose omission [Not Recovered/Not Resolved]
  - Dysphagia [Unknown]
  - Wrong patient received medication [Unknown]
